FAERS Safety Report 6676904-6 (Version None)
Quarter: 2010Q2

REPORT INFORMATION
  Report Type: 
  Country: None (occurrence: None)
  Receive Date: 20100412
  Receipt Date: 20100330
  Transmission Date: 20101027
  Serious: No
  Sender: FDA-Public Use
  Company Number: US-B.I. PHARMACEUTICALS,INC./RIDGEFIELD-2010-BP-03089BP

PATIENT
  Sex: Female

DRUGS (10)
  1. SPIRIVA [Suspect]
     Indication: INTERSTITIAL LUNG DISEASE
     Dosage: 18 MCG
     Route: 055
     Dates: start: 20080101
  2. ADVAIR DISKUS 100/50 [Concomitant]
     Indication: INTERSTITIAL LUNG DISEASE
     Dosage: 2 PUF
  3. TRAVATAN [Concomitant]
     Indication: GLAUCOMA
     Route: 031
  4. AZOPT [Concomitant]
     Indication: GLAUCOMA
  5. CARDIZEM CD [Concomitant]
     Indication: HYPERTENSION
     Dosage: 180 MG
  6. LORAZEPAM [Concomitant]
  7. PROVENTIL [Concomitant]
  8. CALTRATE [Concomitant]
  9. VITAMIN B6 [Concomitant]
  10. OXYGEN [Concomitant]
     Dates: start: 20080101

REACTIONS (2)
  - DYSPNOEA [None]
  - NERVOUSNESS [None]
